FAERS Safety Report 25438031 (Version 1)
Quarter: 2025Q2

REPORT INFORMATION
  Report Type: Spontaneous
  Country: US (occurrence: US)
  Receive Date: 20250616
  Receipt Date: 20250616
  Transmission Date: 20250716
  Serious: Yes (Other)
  Sender: ROCHE
  Company Number: US-ROCHE-10000307381

PATIENT
  Age: 59 Year
  Sex: Female

DRUGS (7)
  1. VABYSMO [Suspect]
     Active Substance: FARICIMAB-SVOA
     Indication: Neovascular age-related macular degeneration
     Route: 050
     Dates: start: 20230901
  2. DEXAMETHASONE [Concomitant]
     Active Substance: DEXAMETHASONE
  3. VANCOMYCIN [Concomitant]
     Active Substance: VANCOMYCIN
  4. CEFTAZIDIME [Concomitant]
     Active Substance: CEFTAZIDIME
  5. PREDNISOLONE [Concomitant]
     Active Substance: PREDNISOLONE
  6. DUREZOL [Concomitant]
     Active Substance: DIFLUPREDNATE
  7. ATROPINE [Concomitant]
     Active Substance: ATROPINE

REACTIONS (2)
  - Eye inflammation [Unknown]
  - Endophthalmitis [Unknown]
